FAERS Safety Report 15387039 (Version 2)
Quarter: 2018Q4

REPORT INFORMATION
  Report Type: Spontaneous
  Country: JP (occurrence: JP)
  Receive Date: 20180914
  Receipt Date: 20180920
  Transmission Date: 20190204
  Serious: Yes (Other)
  Sender: FDA-Public Use
  Company Number: JP-PFIZER INC-2018368490

PATIENT
  Age: 39 Year
  Sex: Female

DRUGS (10)
  1. BELSOMRA [Suspect]
     Active Substance: SUVOREXANT
     Indication: INSOMNIA
     Route: 048
  2. RELPAX [Suspect]
     Active Substance: ELETRIPTAN HYDROBROMIDE
     Indication: MIGRAINE
     Dosage: 20 MG, DAILY
     Route: 048
  3. ABILIFY [Suspect]
     Active Substance: ARIPIPRAZOLE
     Route: 048
  4. CALONAL [Suspect]
     Active Substance: ACETAMINOPHEN
     Route: 048
  5. KEISHIKARYUKOTSUBOREITO [Suspect]
     Active Substance: HERBALS
     Dosage: UNK
     Route: 048
  6. LENDORMIN [Suspect]
     Active Substance: BROTIZOLAM
     Indication: INSOMNIA
     Dosage: 0.25 MG, DAILY
     Route: 048
  7. JUZENTAIHOTO [ANGELICA ACUTILOBA ROOT;ASTRAGALUS SPP. ROOT;ATRACTYLODE [Suspect]
     Active Substance: HERBALS
     Route: 048
  8. SELBEX [Suspect]
     Active Substance: TEPRENONE
     Indication: GASTRIC MUCOSAL LESION
     Route: 048
  9. JZOLOFT 100MG [Suspect]
     Active Substance: SERTRALINE HYDROCHLORIDE
     Indication: DEPRESSION
     Dosage: 100 MG, DAILY
     Route: 048
  10. LOXONIN [Suspect]
     Active Substance: LOXOPROFEN SODIUM
     Indication: HEADACHE
     Dosage: 60 MG, DAILY
     Route: 048

REACTIONS (1)
  - Coronary artery dissection [Unknown]
